FAERS Safety Report 10068871 (Version 1)
Quarter: 2014Q2

REPORT INFORMATION
  Report Type: Spontaneous
  Country: AU (occurrence: AU)
  Receive Date: 20140409
  Receipt Date: 20140409
  Transmission Date: 20141212
  Serious: Yes (Other)
  Sender: FDA-Public Use
  Company Number: PHHY2014AU042459

PATIENT
  Sex: Female

DRUGS (5)
  1. LETROZOLE [Suspect]
     Dosage: UNK UKN, UNK
     Dates: start: 201301
  2. ZOLADEX [Concomitant]
     Dosage: UNK UKN, UNK
     Dates: start: 201211
  3. FENTANYL [Concomitant]
     Dosage: UNK UKN, UNK
  4. BONDRONAT [Concomitant]
     Dosage: UNK UKN, UNK
  5. LYRICA [Concomitant]

REACTIONS (3)
  - Bone disorder [Unknown]
  - Bone lesion [Unknown]
  - Back pain [Recovered/Resolved]
